FAERS Safety Report 4929112-0 (Version None)
Quarter: 2006Q1

REPORT INFORMATION
  Report Type: 
  Country: None (occurrence: None)
  Receive Date: 20060228
  Receipt Date: 20060228
  Transmission Date: 20060701
  Serious: Yes (Hospitalization)
  Sender: FDA-Public Use
  Company Number: None

PATIENT
  Age: 80 Year
  Sex: Female
  Weight: 76.8 kg

DRUGS (2)
  1. SPIRONOLACTONE [Suspect]
     Indication: BLOOD PRESSURE
     Dosage: 25 MG DAILY PO
     Route: 048
     Dates: start: 20060127, end: 20060226
  2. SPIRONOLACTONE [Suspect]
     Indication: DIURETIC THERAPY
     Dosage: 25 MG DAILY PO
     Route: 048
     Dates: start: 20060127, end: 20060226

REACTIONS (3)
  - ATRIOVENTRICULAR BLOCK [None]
  - DEHYDRATION [None]
  - HYPERKALAEMIA [None]
